FAERS Safety Report 23632301 (Version 2)
Quarter: 2025Q3

REPORT INFORMATION
  Report Type: Report from Study
  Country: CA (occurrence: CA)
  Receive Date: 20240314
  Receipt Date: 20250714
  Transmission Date: 20251021
  Serious: Yes (Other)
  Sender: SANDOZ
  Company Number: CA-002147023-NVSC2022CA121031

PATIENT
  Sex: Female

DRUGS (17)
  1. HYRIMOZ [Suspect]
     Active Substance: ADALIMUMAB-ADAZ
     Indication: Ankylosing spondylitis
     Dosage: 40 MG, QW
     Route: 058
     Dates: start: 20240301
  2. HYRIMOZ [Suspect]
     Active Substance: ADALIMUMAB-ADAZ
     Indication: Crohn^s disease
     Dosage: 40 MG, QW
     Route: 058
     Dates: start: 20220214
  3. NAPROXEN [Suspect]
     Active Substance: NAPROXEN
     Indication: Arthritis
     Route: 065
  4. BOTOX [Concomitant]
     Active Substance: ONABOTULINUMTOXINA
     Indication: Product used for unknown indication
     Route: 065
  5. CITALOPRAM [Concomitant]
     Active Substance: CITALOPRAM
     Indication: Product used for unknown indication
     Route: 065
  6. COENZYME Q10 [Concomitant]
     Active Substance: DIETARY SUPPLEMENT\UBIDECARENONE
     Indication: Product used for unknown indication
     Route: 065
  7. CYCLOBENZAPRINE [Concomitant]
     Active Substance: CYCLOBENZAPRINE
     Indication: Product used for unknown indication
     Route: 065
  8. DEPO-PROVERA [Concomitant]
     Active Substance: MEDROXYPROGESTERONE ACETATE
     Indication: Product used for unknown indication
     Route: 065
  9. HUMIRA [Concomitant]
     Active Substance: ADALIMUMAB
     Indication: Crohn^s disease
     Route: 065
  10. MODAFINIL [Concomitant]
     Active Substance: MODAFINIL
     Indication: Product used for unknown indication
     Route: 065
  11. RIZATRIPTAN [Concomitant]
     Active Substance: RIZATRIPTAN
     Indication: Product used for unknown indication
     Route: 065
  12. ALBUTEROL [Concomitant]
     Active Substance: ALBUTEROL
     Indication: Product used for unknown indication
     Route: 065
  13. SYMBICORT [Concomitant]
     Active Substance: BUDESONIDE\FORMOTEROL FUMARATE DIHYDRATE
     Indication: Product used for unknown indication
     Route: 065
  14. VITAMIN B12 [Concomitant]
     Active Substance: CYANOCOBALAMIN
     Indication: Product used for unknown indication
     Route: 065
  15. VITAMIN B2 [Concomitant]
     Active Substance: RIBOFLAVIN
     Indication: Product used for unknown indication
     Route: 065
  16. VITAMIN D [Concomitant]
     Active Substance: VITAMIN D NOS
     Indication: Product used for unknown indication
     Route: 065
  17. WELLBUTRIN [Concomitant]
     Active Substance: BUPROPION HYDROCHLORIDE
     Indication: Product used for unknown indication
     Route: 065

REACTIONS (14)
  - Ankylosing spondylitis [Unknown]
  - Crohn^s disease [Unknown]
  - Constipation [Unknown]
  - Diarrhoea [Recovering/Resolving]
  - Arthralgia [Recovering/Resolving]
  - Abdominal pain [Recovering/Resolving]
  - Multiple sclerosis [Unknown]
  - Immunosuppressant drug level increased [Unknown]
  - COVID-19 [Unknown]
  - Arthritis [Recovered/Resolved]
  - Abdominal discomfort [Unknown]
  - Sweat gland infection [Unknown]
  - Infection [Unknown]
  - Off label use [Unknown]
